FAERS Safety Report 7915446-4 (Version None)
Quarter: 2011Q4

REPORT INFORMATION
  Report Type: 
  Country: None (occurrence: None)
  Receive Date: 20111115
  Receipt Date: 20111104
  Transmission Date: 20120403
  Serious: Yes (Other)
  Sender: FDA-Public Use
  Company Number: IE-ROCHE-1009347

PATIENT
  Age: 44 Year
  Sex: Female

DRUGS (4)
  1. METHYLPREDNISOLONE [Concomitant]
     Route: 042
     Dates: start: 20111011
  2. ACETAMINOPHEN [Concomitant]
     Route: 048
     Dates: start: 20111011
  3. CHLORPHENIRAMINE MALEATE [Concomitant]
     Route: 042
     Dates: start: 20111011
  4. MABTHERA [Suspect]
     Indication: MULTIPLE SCLEROSIS
     Route: 042
     Dates: start: 20111011

REACTIONS (1)
  - DYSPHAGIA [None]
